FAERS Safety Report 9995048 (Version 1)
Quarter: 2014Q1

REPORT INFORMATION
  Report Type: Spontaneous
  Country: FR (occurrence: None)
  Receive Date: 20140307
  Receipt Date: 20140307
  Transmission Date: 20141002
  Serious: Yes (Hospitalization)
  Sender: FDA-Public Use
  Company Number: 2014-FR-002231

PATIENT
  Age: 51 Year
  Sex: Female

DRUGS (2)
  1. ERWINASE [Suspect]
     Dosage: 3 IN 1 WEEK (14 JAN, 16 JAN, 18 JAN, 20 JAN, 22 JAN, 24 JAN, 26 JAN)
     Route: 042
     Dates: start: 20140114, end: 20140202
  2. DEXAMETHASONE [Concomitant]

REACTIONS (15)
  - Anaphylactic shock [None]
  - Grand mal convulsion [None]
  - Erythema [None]
  - Hot flush [None]
  - Nausea [None]
  - Laryngitis [None]
  - Dyspnoea [None]
  - Bronchospasm [None]
  - Oxygen saturation decreased [None]
  - Blood culture positive [None]
  - Pneumonia klebsiella [None]
  - Enterococcal infection [None]
  - Rash [None]
  - Vomiting [None]
  - Blood pressure decreased [None]
